FAERS Safety Report 5743976-2 (Version None)
Quarter: 2008Q2

REPORT INFORMATION
  Report Type: 
  Country: None (occurrence: None)
  Receive Date: 20080520
  Receipt Date: 20080513
  Transmission Date: 20081010
  Serious: Yes (Other)
  Sender: FDA-Public Use
  Company Number: US-ABBOTT-08P-163-0451913-00

PATIENT
  Sex: Female
  Weight: 113.5 kg

DRUGS (18)
  1. HUMIRA [Suspect]
     Indication: RHEUMATOID ARTHRITIS
     Route: 058
     Dates: start: 20060301
  2. HUMIRA [Suspect]
     Indication: PSORIATIC ARTHROPATHY
  3. METHOTREXATE [Concomitant]
     Indication: RHEUMATOID ARTHRITIS
  4. METHOTREXATE [Concomitant]
     Indication: PSORIATIC ARTHROPATHY
  5. CELECOXIB [Concomitant]
     Indication: ARTHRITIS
     Route: 048
  6. FOLIC ACID [Concomitant]
     Indication: DRUG USE FOR UNKNOWN INDICATION
     Route: 048
  7. ESOMEPRAZOLE MAGNESIUM [Concomitant]
     Indication: GASTRIC DISORDER
     Route: 048
  8. MONTELUKAST SODIUM [Concomitant]
     Indication: HYPERSENSITIVITY
     Route: 048
  9. LEVOCETIRIZINE DIHYDROCHLORIDE [Concomitant]
     Indication: DRUG USE FOR UNKNOWN INDICATION
  10. BECLOMETHASONE DIPROPIONATE [Concomitant]
     Indication: HYPERSENSITIVITY
     Route: 055
  11. VICODIN [Concomitant]
     Indication: PAIN
     Route: 048
  12. CARISOPRODOL [Concomitant]
     Indication: PAIN
     Route: 048
  13. TRAZODONE HCL [Concomitant]
     Indication: INSOMNIA
     Dosage: AT BED TIME
     Route: 048
  14. HYDROCHLOROTHIAZIDE [Concomitant]
     Indication: DRUG USE FOR UNKNOWN INDICATION
     Dosage: DAILY
     Route: 048
  15. SALBUTAMOL SULFATE [Concomitant]
     Indication: HYPERSENSITIVITY
     Route: 055
  16. PROPRANOLOL [Concomitant]
     Indication: MIGRAINE
     Dosage: DAILY
     Route: 048
  17. COLESTYRAMINE [Concomitant]
     Indication: IRRITABLE BOWEL SYNDROME
     Route: 048
  18. REPLAQ [Concomitant]
     Indication: MIGRAINE
     Route: 048

REACTIONS (9)
  - BRONCHITIS [None]
  - HAIR TEXTURE ABNORMAL [None]
  - HEADACHE [None]
  - HERPES ZOSTER [None]
  - INFECTION [None]
  - INFLUENZA LIKE ILLNESS [None]
  - PROTEIN TOTAL ABNORMAL [None]
  - SINUS POLYP [None]
  - SINUSITIS [None]
